FAERS Safety Report 6402742-5 (Version None)
Quarter: 2009Q4

REPORT INFORMATION
  Report Type: 
  Country: None (occurrence: None)
  Receive Date: 20091013
  Receipt Date: 20090929
  Transmission Date: 20100525
  Serious: Yes (Hospitalization)
  Sender: FDA-Public Use
  Company Number: FABR-1000015

PATIENT
  Age: 16 Year
  Sex: Male
  Weight: 62.6 kg

DRUGS (1)
  1. FABRAZYME [Suspect]
     Indication: FABRY'S DISEASE
     Dates: start: 20070801

REACTIONS (13)
  - ABDOMINAL PAIN UPPER [None]
  - ANXIETY [None]
  - BLOOD PRESSURE INCREASED [None]
  - BODY TEMPERATURE INCREASED [None]
  - CHILLS [None]
  - HEART RATE INCREASED [None]
  - INFUSION RELATED REACTION [None]
  - LARYNGEAL OEDEMA [None]
  - LIVEDO RETICULARIS [None]
  - PAIN IN EXTREMITY [None]
  - TREMOR [None]
  - VIRAL INFECTION [None]
  - VISION BLURRED [None]
